FAERS Safety Report 24112746 (Version 1)
Quarter: 2024Q3

REPORT INFORMATION
  Report Type: Spontaneous
  Country: CH (occurrence: CH)
  Receive Date: 20240719
  Receipt Date: 20240719
  Transmission Date: 20241017
  Serious: Yes (Death)
  Sender: REGENERON
  Company Number: CH-BAYER-2024A104072

PATIENT
  Age: 88 Year
  Sex: Female

DRUGS (1)
  1. EYLEA [Suspect]
     Active Substance: AFLIBERCEPT
     Indication: Product used for unknown indication
     Dosage: UNK, 40 MG/ML
     Route: 065
     Dates: start: 20140519

REACTIONS (1)
  - Death [Fatal]

NARRATIVE: CASE EVENT DATE: 20230411
